FAERS Safety Report 8250569-4 (Version None)
Quarter: 2012Q2

REPORT INFORMATION
  Report Type: 
  Country: None (occurrence: None)
  Receive Date: 20120402
  Receipt Date: 20120402
  Transmission Date: 20120825
  Serious: Yes (Other)
  Sender: FDA-Public Use
  Company Number: None

PATIENT
  Age: 73 Year
  Sex: Female

DRUGS (1)
  1. LORTAB [Suspect]
     Route: 048
     Dates: start: 20120330, end: 20120331

REACTIONS (1)
  - NAUSEA [None]
